FAERS Safety Report 10444426 (Version 1)
Quarter: 2014Q3

REPORT INFORMATION
  Report Type: Spontaneous
  Country: DE (occurrence: None)
  Receive Date: 20140908
  Receipt Date: 20140908
  Transmission Date: 20150326
  Serious: Yes (Life-Threatening, Other)
  Sender: FDA-Public Use
  Company Number: 2014VER00192

PATIENT
  Age: 21 Year
  Sex: Male

DRUGS (4)
  1. ITRACONAZOLE. [Suspect]
     Active Substance: ITRACONAZOLE
     Indication: PROPHYLAXIS
  2. COTRIMOXAZOLE [Concomitant]
     Active Substance: SULFAMETHOXAZOLE\TRIMETHOPRIM
  3. ISOTRETINOIN (ISOTRETINOIN) UNKNOWN [Suspect]
     Active Substance: ISOTRETINOIN
     Indication: ACNE
     Dosage: SYSTEMIC
     Dates: start: 2011, end: 20110511
  4. ITRACONAZOLE. [Suspect]
     Active Substance: ITRACONAZOLE
     Indication: ASPERGILLUS INFECTION

REACTIONS (3)
  - Drug interaction [None]
  - Bronchopulmonary aspergillosis [None]
  - Drug level decreased [None]

NARRATIVE: CASE EVENT DATE: 20110511
